FAERS Safety Report 5061224-6 (Version None)
Quarter: 2006Q3

REPORT INFORMATION
  Report Type: 
  Country: None (occurrence: None)
  Receive Date: 20060720
  Receipt Date: 20060705
  Transmission Date: 20061208
  Serious: Yes (Other)
  Sender: FDA-Public Use
  Company Number: L06-GER-02656-02

PATIENT
  Age: 28 Year
  Sex: Female

DRUGS (4)
  1. ESCITALOPRAM [Suspect]
     Indication: GENERALISED ANXIETY DISORDER
     Dosage: 10 MG QD
  2. ESCITALOPRAM [Suspect]
     Indication: GENERALISED ANXIETY DISORDER
     Dosage: 20 MG QD
  3. LAMOTRIGINE [Suspect]
     Indication: EPILEPSY
     Dosage: 200 MG QD
  4. LAMOTRIGINE [Suspect]
     Indication: EPILEPSY
     Dosage: 300 MG QD

REACTIONS (2)
  - DRUG INTERACTION [None]
  - MYOCLONUS [None]
